FAERS Safety Report 10555649 (Version 1)
Quarter: 2014Q4

REPORT INFORMATION
  Report Type: Spontaneous
  Country: US (occurrence: US)
  Receive Date: 20141030
  Receipt Date: 20141030
  Transmission Date: 20150529
  Serious: No
  Sender: FDA-Public Use
  Company Number: US-CUBIST PHARMACEUTICALS, INC.-2014CBST000525

PATIENT

DRUGS (2)
  1. CUBICIN [Suspect]
     Active Substance: DAPTOMYCIN
     Indication: STAPHYLOCOCCAL ABSCESS
     Dosage: 702 MG (10ML), QD
     Route: 042
     Dates: start: 20140316, end: 20140324
  2. CUBICIN [Suspect]
     Active Substance: DAPTOMYCIN
     Indication: CELLULITIS STAPHYLOCOCCAL
     Dosage: 6 MG/KG, QD
     Route: 042
     Dates: start: 20140316, end: 20140324

REACTIONS (2)
  - Burning sensation [Unknown]
  - Pruritus [Unknown]

NARRATIVE: CASE EVENT DATE: 20140324
